FAERS Safety Report 7820856-X (Version None)
Quarter: 2011Q4

REPORT INFORMATION
  Report Type: 
  Country: None (occurrence: None)
  Receive Date: 20111018
  Receipt Date: 20111017
  Transmission Date: 20120403
  Serious: Yes (Hospitalization)
  Sender: FDA-Public Use
  Company Number: US-CEPHALON-2011004957

PATIENT
  Sex: Female
  Weight: 64 kg

DRUGS (5)
  1. TREANDA [Suspect]
     Dates: start: 20111005, end: 20111005
  2. RITUXAN [Suspect]
     Dates: start: 20111005, end: 20111005
  3. RITUXAN [Suspect]
     Indication: NON-HODGKIN'S LYMPHOMA
     Route: 042
     Dates: start: 20110810, end: 20110907
  4. TREANDA [Suspect]
     Indication: NON-HODGKIN'S LYMPHOMA
     Route: 042
     Dates: start: 20110810, end: 20110908
  5. VELCADE [Suspect]
     Indication: NON-HODGKIN'S LYMPHOMA
     Route: 042
     Dates: start: 20110810, end: 20110914

REACTIONS (3)
  - TACHYCARDIA [None]
  - RASH [None]
  - TREMOR [None]
